FAERS Safety Report 12445718 (Version 4)
Quarter: 2019Q2

REPORT INFORMATION
  Report Type: Spontaneous
  Country: US (occurrence: US)
  Receive Date: 20160608
  Receipt Date: 20190614
  Transmission Date: 20190711
  Serious: No
  Sender: FDA-Public Use
  Company Number: US-JNJFOC-20160508244

PATIENT
  Age: 43 Year
  Sex: Male

DRUGS (4)
  1. RISPERDAL [Suspect]
     Active Substance: RISPERIDONE
     Indication: SCHIZOPHRENIA
     Route: 048
     Dates: start: 2006
  2. RISPERDAL [Suspect]
     Active Substance: RISPERIDONE
     Indication: MENTAL DISORDER
     Dosage: 2 MG ORALLY EVERY NIGHT AT BEDTIME (QHS) AND THEN 4 MG ORALLY QHS FOR 89 DAYS
     Route: 048
     Dates: start: 20050323, end: 20050620
  3. RISPERDAL [Suspect]
     Active Substance: RISPERIDONE
     Indication: MENTAL DISORDER
     Route: 048
     Dates: start: 2006
  4. RISPERDAL [Suspect]
     Active Substance: RISPERIDONE
     Indication: SCHIZOPHRENIA
     Dosage: 2 MG ORALLY EVERY NIGHT AT BEDTIME (QHS) AND THEN 4 MG ORALLY QHS FOR 89 DAYS
     Route: 048
     Dates: start: 20050323, end: 20050620

REACTIONS (5)
  - Gynaecomastia [Unknown]
  - Poor quality sleep [Unknown]
  - Abnormal weight gain [Unknown]
  - Muscle spasms [Unknown]
  - Drug intolerance [Unknown]

NARRATIVE: CASE EVENT DATE: 20050526
